FAERS Safety Report 9549460 (Version 2)
Quarter: 2014Q2

REPORT INFORMATION
  Report Type: Spontaneous
  Country: US (occurrence: US)
  Receive Date: 20130924
  Receipt Date: 20140418
  Transmission Date: 20141212
  Serious: No
  Sender: FDA-Public Use
  Company Number: US-009507513-1208USA008486

PATIENT
  Age: 28 Year
  Sex: Female

DRUGS (5)
  1. SINGULAIR [Suspect]
     Indication: HYPERSENSITIVITY
     Dosage: 5 MG, QD
     Route: 048
     Dates: start: 2008
  2. TOPAMAX [Concomitant]
  3. LIPITOR [Concomitant]
  4. XANAX [Concomitant]
  5. LANTUS [Concomitant]

REACTIONS (2)
  - Exposure during pregnancy [Unknown]
  - Drug administration error [Unknown]
